FAERS Safety Report 10654463 (Version 1)
Quarter: 2014Q4

REPORT INFORMATION
  Report Type: Spontaneous
  Country: FR (occurrence: FR)
  Receive Date: 20141216
  Receipt Date: 20141216
  Transmission Date: 20150529
  Serious: Yes (Hospitalization, Other)
  Sender: FDA-Public Use
  Company Number: FR-TEVA-528820ISR

PATIENT
  Sex: Male

DRUGS (1)
  1. COPAXONE [Suspect]
     Active Substance: GLATIRAMER ACETATE
     Dosage: WITH THE AUTOJECT AT A DEPTH BETWSEEN 9 AND 10 MM AT EACH INJECTION SITE.
     Route: 058
     Dates: start: 201202

REACTIONS (11)
  - Movement disorder [Recovering/Resolving]
  - Gait disturbance [Recovering/Resolving]
  - Injection site paraesthesia [Recovered/Resolved]
  - Incontinence [Recovering/Resolving]
  - Burning sensation [Recovering/Resolving]
  - Libido decreased [Recovering/Resolving]
  - Multiple sclerosis relapse [Recovering/Resolving]
  - Injection site pain [Recovered/Resolved]
  - Neuralgia [Recovering/Resolving]
  - Paraesthesia [Recovering/Resolving]
  - Constipation [Recovering/Resolving]

NARRATIVE: CASE EVENT DATE: 2014
